FAERS Safety Report 7019288-6 (Version None)
Quarter: 2010Q3

REPORT INFORMATION
  Report Type: 
  Country: None (occurrence: None)
  Receive Date: 20100924
  Receipt Date: 20100908
  Transmission Date: 20110219
  Serious: Yes (Hospitalization)
  Sender: FDA-Public Use
  Company Number: AE 2010-262

PATIENT
  Age: 34 Year
  Sex: Male

DRUGS (1)
  1. CLOZAPINE [Suspect]
     Indication: SCHIZOPHRENIA, PARANOID TYPE
     Dosage: 200 MG/DAY PO
     Route: 048
     Dates: start: 20080101

REACTIONS (11)
  - CACHEXIA [None]
  - COAGULOPATHY [None]
  - COLITIS ISCHAEMIC [None]
  - CONSTIPATION [None]
  - DELIRIUM [None]
  - FAECALOMA [None]
  - HAEMATEMESIS [None]
  - HAEMODYNAMIC INSTABILITY [None]
  - HYPOTENSION [None]
  - PLEURAL EFFUSION [None]
  - SEPTIC SHOCK [None]
